FAERS Safety Report 8336127-1 (Version None)
Quarter: 2012Q1

REPORT INFORMATION
  Report Type: 
  Country: None (occurrence: None)
  Receive Date: 20120329
  Receipt Date: 20100122
  Transmission Date: 20120608
  Serious: Yes (Hospitalization)
  Sender: FDA-Public Use
  Company Number: PHEH2010US01302

PATIENT

DRUGS (1)
  1. EXELON [Suspect]

REACTIONS (1)
  - ABDOMINAL PAIN [None]
